FAERS Safety Report 4489138-0 (Version None)
Quarter: 2004Q4

REPORT INFORMATION
  Report Type: 
  Country: None (occurrence: None)
  Receive Date: 20041026
  Receipt Date: 20041018
  Transmission Date: 20050328
  Serious: Yes (Life-Threatening, Hospitalization)
  Sender: FDA-Public Use
  Company Number: 2004AC00605

PATIENT
  Age: 53 Year
  Sex: Female

DRUGS (1)
  1. QUETIAPINE [Suspect]
     Dosage: 10.7 G ONCE PO
     Route: 048

REACTIONS (4)
  - OVERDOSE [None]
  - POISONING [None]
  - RHABDOMYOLYSIS [None]
  - SOMNOLENCE [None]
